FAERS Safety Report 15783655 (Version 1)
Quarter: 2019Q1

REPORT INFORMATION
  Report Type: Spontaneous
  Country: FR (occurrence: FR)
  Receive Date: 20190102
  Receipt Date: 20190102
  Transmission Date: 20190417
  Serious: Yes (Death, Congenital Anomaly, Other)
  Sender: FDA-Public Use
  Company Number: FR-BIOGEN-2018BI00675295

PATIENT
  Age: 36 Year
  Sex: Female

DRUGS (2)
  1. LEVOTHYROXINE SODIQUE [Concomitant]
     Active Substance: LEVOTHYROXINE SODIUM
     Indication: PRODUCT USED FOR UNKNOWN INDICATION
     Route: 048
  2. TYSABRI [Suspect]
     Active Substance: NATALIZUMAB
     Indication: MULTIPLE SCLEROSIS
     Route: 064
     Dates: start: 201501, end: 201809

REACTIONS (2)
  - Abortion spontaneous [Fatal]
  - Cardiac dysfunction [Fatal]

NARRATIVE: CASE EVENT DATE: 20181022
